FAERS Safety Report 12196745 (Version 2)
Quarter: 2016Q2

REPORT INFORMATION
  Report Type: Report from Study
  Country: US (occurrence: US)
  Receive Date: 20160321
  Receipt Date: 20160422
  Transmission Date: 20160815
  Serious: Yes (Death, Hospitalization)
  Sender: FDA-Public Use
  Company Number: US-ACTELION-A-NJ2015-122783

PATIENT
  Age: 68 Year
  Sex: Female

DRUGS (5)
  1. TREPROSTINIL DIOLAMIN [Concomitant]
     Active Substance: TREPROSTINIL DIOLAMINE
     Dosage: 5 MG, TID
  2. ADCIRCA [Concomitant]
     Active Substance: TADALAFIL
  3. NORVASC [Concomitant]
     Active Substance: AMLODIPINE BESYLATE
  4. MACITENTAN [Suspect]
     Active Substance: MACITENTAN
     Indication: PULMONARY ARTERIAL HYPERTENSION
     Dosage: 10 MG, QD
     Route: 048
     Dates: start: 20150310
  5. TREPROSTINIL DIOLAMIN [Concomitant]
     Active Substance: TREPROSTINIL DIOLAMINE
     Dosage: 4.75 MG, UNK

REACTIONS (15)
  - Dehydration [Unknown]
  - Vomiting [Unknown]
  - Weight decreased [Unknown]
  - Plantar fasciitis [Unknown]
  - Nausea [Unknown]
  - Feeling cold [Unknown]
  - Rash [Unknown]
  - Fatigue [Unknown]
  - Dyspnoea [Unknown]
  - Limb injury [Unknown]
  - Death [Fatal]
  - Decreased appetite [Unknown]
  - Diarrhoea [Unknown]
  - Pain in extremity [Unknown]
  - Abdominal discomfort [Unknown]
